FAERS Safety Report 24752087 (Version 1)
Quarter: 2024Q4

REPORT INFORMATION
  Report Type: Report from Study
  Country: US (occurrence: US)
  Receive Date: 20241219
  Receipt Date: 20241219
  Transmission Date: 20250114
  Serious: Yes (Other)
  Sender: ACADIA PHARMACEUTICALS
  Company Number: US-ACADIA PHARMACEUTICALS INC.-ACA-2024-PIM-008195

PATIENT
  Sex: Male

DRUGS (24)
  1. NUPLAZID [Suspect]
     Active Substance: PIMAVANSERIN TARTRATE
     Indication: Parkinson^s disease
     Dosage: 34 MILLIGRAM, QD
     Route: 048
     Dates: start: 20230425
  2. QUETIAPINE [Concomitant]
     Active Substance: QUETIAPINE
     Dosage: 100 MILLIGRAM
  3. QUETIAPINE [Concomitant]
     Active Substance: QUETIAPINE
     Dosage: 50 MILLIGRAM
  4. MYRBETRIQ [Concomitant]
     Active Substance: MIRABEGRON
     Dosage: 50 MILLIGRAM
  5. DOXYCYCLINE HYCLATE [Concomitant]
     Active Substance: DOXYCYCLINE HYCLATE
     Dosage: 50 MILLIGRAM
  6. MOXIFLOXACIN [Concomitant]
     Active Substance: MOXIFLOXACIN
     Dosage: 0.5%
  7. DULOXETINE [Concomitant]
     Active Substance: DULOXETINE
     Dosage: 60 MILLIGRAM
  8. ATROPINE SULFATE [Concomitant]
     Active Substance: ATROPINE SULFATE
     Dosage: 1 %
     Route: 047
  9. PREDNISOLONE [Concomitant]
     Active Substance: PREDNISOLONE
     Dosage: 1 %
     Route: 047
  10. DONEPEZIL [Concomitant]
     Active Substance: DONEPEZIL
     Dosage: 10 MILLIGRAM
  11. TOLTERODINE [Concomitant]
     Active Substance: TOLTERODINE
     Dosage: 2 MILLIGRAM
  12. COMBIGAN [Concomitant]
     Active Substance: BRIMONIDINE TARTRATE\TIMOLOL MALEATE
     Dosage: 0.2/0.5%
  13. RHOPRESSA [Concomitant]
     Active Substance: NETARSUDIL MESYLATE
     Dosage: 0.02%
  14. LUMIGAN [Concomitant]
     Active Substance: BIMATOPROST
     Dosage: 0.01 %
     Route: 047
  15. DUTASTERIDE\TAMSULOSIN HYDROCHLORIDE [Concomitant]
     Active Substance: DUTASTERIDE\TAMSULOSIN HYDROCHLORIDE
     Dosage: 0.5-0.4
  16. CLONAZEPAM [Concomitant]
     Active Substance: CLONAZEPAM
     Dosage: 1 MILLIGRAM
  17. VALACYCLOVIR [Concomitant]
     Active Substance: VALACYCLOVIR HYDROCHLORIDE
     Dosage: 500 MILLIGRAM
  18. PANTOPRAZOLE [Concomitant]
     Active Substance: PANTOPRAZOLE
     Dosage: 40 MILLIGRAM
  19. FOLIC ACID [Concomitant]
     Active Substance: FOLIC ACID
     Dosage: 1 MILLIGRAM
  20. MELOXICAM [Concomitant]
     Active Substance: MELOXICAM
     Dosage: 7.5 MILLIGRAM
  21. SOLIFENACIN [Concomitant]
     Active Substance: SOLIFENACIN
     Dosage: 5 MILLIGRAM
  22. IPRATROPIUM [Concomitant]
     Active Substance: IPRATROPIUM
     Dosage: SPR 0.06%
  23. ATORVASTATIN [Concomitant]
     Active Substance: ATORVASTATIN
     Dosage: 40 MILLIGRAM
  24. CARBIDOPA\LEVODOPA [Concomitant]
     Active Substance: CARBIDOPA\LEVODOPA
     Dosage: 25-100 MILLIGRAM

REACTIONS (4)
  - Hallucination [Unknown]
  - Condition aggravated [Unknown]
  - Gait disturbance [Unknown]
  - Confusional state [Unknown]
